FAERS Safety Report 9856481 (Version 1)
Quarter: 2014Q1

REPORT INFORMATION
  Report Type: Spontaneous
  Country: US (occurrence: US)
  Receive Date: 20140130
  Receipt Date: 20140130
  Transmission Date: 20141002
  Serious: Yes (Hospitalization)
  Sender: FDA-Public Use
  Company Number: US-ROXANE LABORATORIES, INC.-2014-RO-00100RO

PATIENT
  Age: 49 Year
  Sex: Male

DRUGS (3)
  1. BUPRENORPHINE HYDROCHLORIDE [Suspect]
     Indication: DRUG DEPENDENCE
     Dosage: 8 MG
     Route: 048
  2. BUPRENORPHINE HYDROCHLORIDE [Suspect]
     Dosage: 12 MG
     Route: 048
  3. TERAZOSIN [Concomitant]
     Indication: BENIGN PROSTATIC HYPERPLASIA
     Dates: start: 2010

REACTIONS (1)
  - Urinary retention [Recovered/Resolved]
